FAERS Safety Report 5176815-1 (Version None)
Quarter: 2006Q4

REPORT INFORMATION
  Report Type: 
  Country: None (occurrence: None)
  Receive Date: 20061218
  Receipt Date: 20060926
  Transmission Date: 20070319
  Serious: Yes (Death, Hospitalization)
  Sender: FDA-Public Use
  Company Number: NLWYE039027SEP06

PATIENT
  Age: 78 Year
  Sex: Female

DRUGS (2)
  1. ENBREL [Suspect]
     Indication: DRUG USE FOR UNKNOWN INDICATION
     Route: 058
     Dates: start: 20040101, end: 20060101
  2. ENBREL [Suspect]
     Route: 058
     Dates: start: 20060101, end: 20060101

REACTIONS (2)
  - CARDIAC ARREST [None]
  - KNEE ARTHROPLASTY [None]
